FAERS Safety Report 13324481 (Version 6)
Quarter: 2017Q3

REPORT INFORMATION
  Report Type: Report from Study
  Country: US (occurrence: US)
  Receive Date: 20170310
  Receipt Date: 20170926
  Transmission Date: 20171127
  Serious: Yes (Hospitalization, Disabling, Other)
  Sender: FDA-Public Use
  Company Number: PHHY2017US036150

PATIENT
  Age: 25 Year
  Sex: Female
  Weight: 65 kg

DRUGS (3)
  1. VITAMIN D [Concomitant]
     Active Substance: CHOLECALCIFEROL
     Indication: MULTIPLE SCLEROSIS
     Dosage: 5000 IU, UNK
     Route: 065
  2. GILENYA [Suspect]
     Active Substance: FINGOLIMOD HYDROCHLORIDE
     Indication: RELAPSING-REMITTING MULTIPLE SCLEROSIS
     Dosage: 0.5 MG, QD
     Route: 048
     Dates: start: 20150825, end: 20170124
  3. SYNTHROID [Concomitant]
     Active Substance: LEVOTHYROXINE SODIUM
     Indication: HYPOTHYROIDISM
     Dosage: 75 UG, QD
     Route: 048

REACTIONS (21)
  - Hyponatraemia [Unknown]
  - Dysuria [Recovered/Resolved]
  - Asthenia [Unknown]
  - Urinary retention [Unknown]
  - Gait disturbance [Unknown]
  - Hypokalaemia [Unknown]
  - Lymphocyte count decreased [Recovering/Resolving]
  - Dysarthria [Unknown]
  - Respiratory depression [Recovered/Resolved]
  - Dyspnoea [Recovering/Resolving]
  - Inspiratory capacity decreased [Recovering/Resolving]
  - Cystitis [Unknown]
  - Chronic hepatitis C [Not Recovered/Not Resolved]
  - Blood pressure decreased [Unknown]
  - Hypoaesthesia [Unknown]
  - Dysphagia [Unknown]
  - Urinary tract infection staphylococcal [Unknown]
  - Multiple sclerosis relapse [Unknown]
  - Urinary incontinence [Recovered/Resolved]
  - Leukopenia [Recovered/Resolved]
  - Nausea [Recovered/Resolved]

NARRATIVE: CASE EVENT DATE: 20161214
